FAERS Safety Report 12363649 (Version 3)
Quarter: 2016Q2

REPORT INFORMATION
  Report Type: Spontaneous
  Country: JP (occurrence: JP)
  Receive Date: 20160512
  Receipt Date: 20160607
  Transmission Date: 20160815
  Serious: Yes (Life-Threatening, Hospitalization, Disabling)
  Sender: FDA-Public Use
  Company Number: JP-DSJP-DSJ-2016-115363

PATIENT

DRUGS (16)
  1. LIXIANA TABLETS 30MG [Suspect]
     Active Substance: EDOXABAN TOSILATE MONOHYDRATE
     Indication: EMBOLISM VENOUS
     Dosage: 30 MG, QD
     Route: 048
     Dates: start: 20150717, end: 20160427
  2. CRESTOR [Concomitant]
     Active Substance: ROSUVASTATIN CALCIUM
     Indication: ANGINA PECTORIS
     Dosage: 2.5 MG, QD
     Route: 065
     Dates: start: 20150717, end: 20160424
  3. ZOLPIDEM TARTRATE. [Concomitant]
     Active Substance: ZOLPIDEM TARTRATE
     Indication: INSOMNIA
     Dosage: 10 MG, QD
     Route: 065
     Dates: start: 20150717, end: 20160427
  4. CRESTOR [Concomitant]
     Active Substance: ROSUVASTATIN CALCIUM
     Indication: HYPERLIPIDAEMIA
  5. YOKUKANSAN [Concomitant]
     Active Substance: HERBALS
     Indication: RESTLESSNESS
     Dosage: 2.5 G, TID
     Route: 065
     Dates: start: 20150717, end: 20160427
  6. EFIENT 3.75MG TABLET [Suspect]
     Active Substance: PRASUGREL HYDROCHLORIDE
     Indication: PERCUTANEOUS CORONARY INTERVENTION
     Dosage: 3.75 MG, QD
     Route: 048
     Dates: start: 20150902, end: 20160427
  7. FUROSEMIDE. [Concomitant]
     Active Substance: FUROSEMIDE
     Indication: CARDIAC FAILURE
     Dosage: 20 MG, QD
     Route: 065
     Dates: start: 20150717, end: 20160427
  8. NICORANDIL [Concomitant]
     Active Substance: NICORANDIL
     Indication: ANGINA PECTORIS
     Dosage: 5 MG, TID
     Route: 065
     Dates: start: 20150902, end: 20160427
  9. LORATADINE. [Concomitant]
     Active Substance: LORATADINE
     Indication: SEASONAL ALLERGY
     Dosage: 10 MG, QD
     Route: 065
     Dates: start: 20150415, end: 20160427
  10. LIXIANA TABLETS 30MG [Suspect]
     Active Substance: EDOXABAN TOSILATE MONOHYDRATE
     Indication: ATRIAL FIBRILLATION
  11. PARIET [Concomitant]
     Active Substance: RABEPRAZOLE SODIUM
     Indication: GASTRIC ULCER
     Dosage: 10 MG, QD
     Route: 065
     Dates: start: 20150717, end: 20160427
  12. SELARA [Concomitant]
     Active Substance: EPLERENONE
     Dosage: 50/DAY
     Route: 048
     Dates: start: 20150707, end: 20150810
  13. BAYASPIRIN [Suspect]
     Active Substance: ASPIRIN
     Indication: ANGINA PECTORIS
     Dosage: 100 MG, QD
     Route: 065
     Dates: start: 20150902, end: 20160427
  14. BISOPROLOL                         /00802602/ [Concomitant]
     Active Substance: BISOPROLOL
     Indication: ANGINA PECTORIS
     Dosage: 2.5 MG, QD
     Route: 065
     Dates: start: 20150717, end: 20160427
  15. ISOSORBIDE. [Concomitant]
     Active Substance: ISOSORBIDE
     Indication: ANGINA PECTORIS
     Dosage: 20 UNK, BID
     Route: 065
     Dates: start: 20150902, end: 20160427
  16. ASPIRIN                            /00002701/ [Suspect]
     Active Substance: ASPIRIN
     Dosage: UNK
     Route: 065

REACTIONS (2)
  - Cerebral infarction [Recovered/Resolved with Sequelae]
  - Cerebral haemorrhage [Recovered/Resolved with Sequelae]

NARRATIVE: CASE EVENT DATE: 20160427
